FAERS Safety Report 5760251-0 (Version None)
Quarter: 2008Q2

REPORT INFORMATION
  Report Type: 
  Country: None (occurrence: None)
  Receive Date: 20080602
  Receipt Date: 20080521
  Transmission Date: 20081010
  Serious: Yes (Hospitalization)
  Sender: FDA-Public Use
  Company Number: 062-21880-08041960

PATIENT
  Age: 63 Year
  Sex: Male
  Weight: 71 kg

DRUGS (4)
  1. REVLIMID [Suspect]
     Indication: PLASMACYTOMA
     Dosage: 25 MG, ORAL, 10 MG, DAILY, ORAL, 15 MG, DAILY, ORAL
     Route: 048
     Dates: start: 20080305, end: 20080325
  2. REVLIMID [Suspect]
     Indication: PLASMACYTOMA
     Dosage: 25 MG, ORAL, 10 MG, DAILY, ORAL, 15 MG, DAILY, ORAL
     Route: 048
     Dates: start: 20080402, end: 20080424
  3. REVLIMID [Suspect]
     Indication: PLASMACYTOMA
     Dosage: 25 MG, ORAL, 10 MG, DAILY, ORAL, 15 MG, DAILY, ORAL
     Route: 048
     Dates: start: 20070901
  4. DECORTIN (PREDNISONE) [Concomitant]

REACTIONS (6)
  - BLOOD CREATININE INCREASED [None]
  - BLOOD POTASSIUM INCREASED [None]
  - BLOOD UREA INCREASED [None]
  - GENERAL PHYSICAL HEALTH DETERIORATION [None]
  - JAUNDICE [None]
  - PANCYTOPENIA [None]
